FAERS Safety Report 21606744 (Version 2)
Quarter: 2023Q2

REPORT INFORMATION
  Report Type: Spontaneous
  Country: AU (occurrence: AU)
  Receive Date: 20221117
  Receipt Date: 20230427
  Transmission Date: 20230721
  Serious: Yes (Disabling, Other)
  Sender: FDA-Public Use
  Company Number: AU-SANOFI-01358639

PATIENT
  Age: 32 Year
  Sex: Male
  Weight: 122 kg

DRUGS (2)
  1. DUPIXENT [Suspect]
     Active Substance: DUPILUMAB
     Indication: Dermatitis atopic
     Dosage: 200 MG, QOW
  2. DUPIXENT [Suspect]
     Active Substance: DUPILUMAB
     Indication: Asthma

REACTIONS (9)
  - Loss of personal independence in daily activities [Unknown]
  - Impaired driving ability [Unknown]
  - Malaise [Unknown]
  - Hypersomnia [Unknown]
  - Fatigue [Unknown]
  - Sleep apnoea syndrome [Unknown]
  - Photosensitivity reaction [Unknown]
  - Therapeutic response shortened [Unknown]
  - Incorrect dose administered [Unknown]
